FAERS Safety Report 10167803 (Version 2)
Quarter: 2014Q3

REPORT INFORMATION
  Report Type: Spontaneous
  Country: US (occurrence: US)
  Receive Date: 20140512
  Receipt Date: 20140812
  Transmission Date: 20150326
  Serious: Yes (Other)
  Sender: FDA-Public Use
  Company Number: US-BAYER-2014-067614

PATIENT
  Age: 29 Year
  Sex: Female
  Weight: 78.28 kg

DRUGS (2)
  1. MIRENA [Suspect]
     Active Substance: LEVONORGESTREL
     Indication: CONTRACEPTION
     Dosage: 20 MCG/24HR, CONT
     Route: 015
     Dates: start: 20140320, end: 20140502
  2. BETADINE [Concomitant]
     Active Substance: POVIDONE-IODINE

REACTIONS (3)
  - Nausea [None]
  - Basedow^s disease [None]
  - Dizziness [None]

NARRATIVE: CASE EVENT DATE: 2014
